FAERS Safety Report 5146001-X (Version None)
Quarter: 2006Q4

REPORT INFORMATION
  Report Type: 
  Country: None (occurrence: None)
  Receive Date: 20061102
  Receipt Date: 20061019
  Transmission Date: 20070319
  Serious: Yes (Other)
  Sender: FDA-Public Use
  Company Number: 2006129495

PATIENT
  Sex: Male

DRUGS (2)
  1. ZARONTIN [Suspect]
     Dosage: 1500 MG (750 MG, 2 IN 1 D), ORAL
     Route: 048
  2. ZARONTIN [Suspect]
     Dosage: 1500 MG (750 MG, 2 IN 1 D), ORAL
     Route: 048

REACTIONS (5)
  - ABNORMAL BEHAVIOUR [None]
  - AGGRESSION [None]
  - DIZZINESS [None]
  - FEELING ABNORMAL [None]
  - HEADACHE [None]
